FAERS Safety Report 4462505-7 (Version None)
Quarter: 2004Q3

REPORT INFORMATION
  Report Type: 
  Country: None (occurrence: None)
  Receive Date: 20040929
  Receipt Date: 20040525
  Transmission Date: 20050211
  Serious: Yes (Other)
  Sender: FDA-Public Use
  Company Number: GB-MERCK-0405GBR00200

PATIENT
  Age: 60 Year
  Sex: Female

DRUGS (3)
  1. CYCLOPENTHIAZIDE AND OXPRENOLOL HYDROCHLORIDE [Concomitant]
     Indication: BLOOD PRESSURE INCREASED
     Route: 065
     Dates: start: 19900101
  2. ZETIA [Suspect]
     Indication: BLOOD CHOLESTEROL INCREASED
     Route: 048
     Dates: start: 20040501, end: 20040520
  3. LEVOTHYROXINE SODIUM [Concomitant]
     Indication: THYROXINE DECREASED
     Route: 065
     Dates: start: 19950101

REACTIONS (8)
  - ABDOMINAL PAIN [None]
  - ALANINE AMINOTRANSFERASE ABNORMAL [None]
  - BLOOD ALKALINE PHOSPHATASE ABNORMAL [None]
  - BLOOD BILIRUBIN ABNORMAL [None]
  - CHROMATURIA [None]
  - JAUNDICE [None]
  - NAUSEA [None]
  - STEATORRHOEA [None]
